FAERS Safety Report 17976730 (Version 1)
Quarter: 2020Q3

REPORT INFORMATION
  Report Type: Spontaneous
  Country: NL (occurrence: NL)
  Receive Date: 20200703
  Receipt Date: 20200703
  Transmission Date: 20201103
  Serious: Yes (Other)
  Sender: FDA-Public Use
  Company Number: NL-ACCORD-187753

PATIENT
  Age: 26 Year
  Sex: Female

DRUGS (2)
  1. METHOTREXATE. [Suspect]
     Active Substance: METHOTREXATE
     Indication: GESTATIONAL TROPHOBLASTIC TUMOUR
     Dosage: ON DAY 1?3?5?7
  2. FOLINIC ACID [Concomitant]
     Active Substance: LEUCOVORIN
     Indication: PROPHYLAXIS
     Dosage: ON DAY 2?4?6, FOLLOWED BY A BREAK OF SEVEN DAYS WITHOUT MEDICATION

REACTIONS (1)
  - Peritonitis [Recovered/Resolved]
